FAERS Safety Report 5610990-7 (Version None)
Quarter: 2008Q1

REPORT INFORMATION
  Report Type: 
  Country: None (occurrence: None)
  Receive Date: 20080201
  Receipt Date: 20080116
  Transmission Date: 20080703
  Serious: Yes (Other)
  Sender: FDA-Public Use
  Company Number: A0676655A

PATIENT
  Age: 70 Year
  Sex: Male

DRUGS (6)
  1. AVODART [Suspect]
     Indication: BENIGN PROSTATIC HYPERPLASIA
     Dosage: .05MG PER DAY
     Route: 048
     Dates: start: 20050601, end: 20080109
  2. FLOMAX [Concomitant]
     Dates: start: 20010101
  3. EYE DROPS [Concomitant]
     Indication: GLAUCOMA
  4. VITAMIN B-12 [Concomitant]
  5. FOLIC ACID [Concomitant]
  6. ASPIRIN [Concomitant]

REACTIONS (11)
  - ASTHENIA [None]
  - BLOOD PRESSURE INCREASED [None]
  - CHILLS [None]
  - DEPRESSION [None]
  - DRUG INEFFECTIVE [None]
  - DYSPHAGIA [None]
  - ERECTILE DYSFUNCTION [None]
  - LACERATION [None]
  - MUSCLE ATROPHY [None]
  - MUSCULAR WEAKNESS [None]
  - URINE FLOW DECREASED [None]
